FAERS Safety Report 20867817 (Version 3)
Quarter: 2022Q2

REPORT INFORMATION
  Report Type: Spontaneous
  Country: GB (occurrence: None)
  Receive Date: 20220524
  Receipt Date: 20220603
  Transmission Date: 20220720
  Serious: Yes (Other)
  Sender: FDA-Public Use
  Company Number: GB-ROCHE-3098708

PATIENT
  Age: 16 Year
  Sex: Male
  Weight: 37 kg

DRUGS (2)
  1. EVRYSDI [Suspect]
     Active Substance: RISDIPLAM
     Indication: Spinal muscular atrophy
     Route: 048
     Dates: start: 20210331
  2. TOCILIZUMAB [Suspect]
     Active Substance: TOCILIZUMAB
     Indication: Rheumatoid arthritis
     Route: 058

REACTIONS (4)
  - Thrombosis [Unknown]
  - Skin discolouration [Unknown]
  - Pain in extremity [Unknown]
  - Pulse absent [Unknown]

NARRATIVE: CASE EVENT DATE: 20220506
